FAERS Safety Report 23831661 (Version 1)
Quarter: 2024Q2

REPORT INFORMATION
  Report Type: Report from Study
  Country: KR (occurrence: KR)
  Receive Date: 20240508
  Receipt Date: 20240508
  Transmission Date: 20240716
  Serious: Yes (Hospitalization)
  Sender: FDA-Public Use
  Company Number: KR-TAKEDA-2024TUS043292

PATIENT
  Age: 74 Year
  Sex: Male
  Weight: 73 kg

DRUGS (14)
  1. VEDOLIZUMAB [Suspect]
     Active Substance: VEDOLIZUMAB
     Indication: Colitis ulcerative
     Dosage: 300 MILLIGRAM
     Route: 042
     Dates: start: 20220927, end: 20221011
  2. AMLODIPINE BESYLATE\HYDROCHLOROTHIAZIDE\OLMESARTAN MEDOXOMIL [Concomitant]
     Active Substance: AMLODIPINE BESYLATE\HYDROCHLOROTHIAZIDE\OLMESARTAN MEDOXOMIL
     Indication: Hypertension
     Dosage: 1 MILLIGRAM, QD
     Route: 048
     Dates: start: 2022
  3. ENCOVER [Concomitant]
     Indication: Supplementation therapy
     Dosage: 200 MILLILITER, TID
     Route: 048
     Dates: start: 20221011, end: 20221107
  4. PROBIOTICS NOS [Concomitant]
     Active Substance: PROBIOTICS NOS
     Dosage: UNK UNK, QD
     Route: 048
     Dates: start: 20200318
  5. PENTASA [Concomitant]
     Active Substance: MESALAMINE
     Dosage: 1 GRAM, QD
     Route: 054
     Dates: start: 20171012
  6. PENTASA [Concomitant]
     Active Substance: MESALAMINE
     Dosage: 1 GRAM, BID
     Route: 048
     Dates: start: 20171012
  7. PENTASA [Concomitant]
     Active Substance: MESALAMINE
     Dosage: UNK UNK, QD
     Route: 048
     Dates: start: 20221116, end: 20221201
  8. NEXIUM [Concomitant]
     Active Substance: ESOMEPRAZOLE MAGNESIUM
     Indication: Adverse event
     Dosage: UNK UNK, QD
     Route: 042
     Dates: start: 20221111, end: 20221116
  9. NUTRIFLEX LIPID PERI [Concomitant]
     Indication: Adverse event
     Dosage: 1250 MILLILITER
     Route: 042
     Dates: start: 20221110, end: 20221114
  10. COOLPREP [Concomitant]
     Dosage: UNK
     Route: 048
     Dates: start: 20221110, end: 20221111
  11. GASOCOL [Concomitant]
     Dosage: 10 MILLILITER
     Route: 048
     Dates: start: 20221111, end: 20221111
  12. ALVERIX [Concomitant]
     Dosage: UNK UNK, BID
     Route: 048
     Dates: start: 20200318
  13. STELARA [Concomitant]
     Active Substance: USTEKINUMAB
     Dosage: 390 MILLIGRAM, QD
     Route: 042
     Dates: start: 20221111, end: 20221111
  14. OMAPONE PERI [Concomitant]
     Indication: Nutritional supplementation
     Dosage: 500 MILLILITER
     Route: 042
     Dates: start: 20221115, end: 20221116

REACTIONS (1)
  - Abdominal pain [Recovered/Resolved]

NARRATIVE: CASE EVENT DATE: 20221110
